FAERS Safety Report 24272490 (Version 2)
Quarter: 2024Q4

REPORT INFORMATION
  Report Type: Report from Study
  Country: CA (occurrence: CA)
  Receive Date: 20240902
  Receipt Date: 20241001
  Transmission Date: 20250115
  Serious: Yes (Other)
  Sender: ABBVIE
  Company Number: CA-ABBVIE-5899075

PATIENT
  Age: 64 Year

DRUGS (1)
  1. RINVOQ [Suspect]
     Active Substance: UPADACITINIB
     Indication: Crohn^s disease
     Dosage: FORM STRENGTH: 30 MG??LAST ADMIN DATE- 2024
     Route: 048
     Dates: start: 20240613

REACTIONS (2)
  - Colectomy [Not Recovered/Not Resolved]
  - Proctectomy [Unknown]

NARRATIVE: CASE EVENT DATE: 20240828
